FAERS Safety Report 20969706 (Version 1)
Quarter: 2022Q2

REPORT INFORMATION
  Report Type: Spontaneous
  Country: US (occurrence: US)
  Receive Date: 20220616
  Receipt Date: 20220616
  Transmission Date: 20220720
  Serious: Yes (Other)
  Sender: FDA-Public Use
  Company Number: US-NEURELIS, INC.-2022NEU000054

PATIENT
  Age: 11 Year
  Sex: Female

DRUGS (1)
  1. VALTOCO [Suspect]
     Active Substance: DIAZEPAM
     Indication: Seizure cluster
     Dosage: UNK UNK, PRN
     Route: 045
     Dates: start: 20220602

REACTIONS (1)
  - Respiratory depression [Recovering/Resolving]

NARRATIVE: CASE EVENT DATE: 20220602
